FAERS Safety Report 10068952 (Version 3)
Quarter: 2014Q2

REPORT INFORMATION
  Report Type: Report from Study
  Country: CA (occurrence: CA)
  Receive Date: 20140409
  Receipt Date: 20140414
  Transmission Date: 20141212
  Serious: Yes (Hospitalization)
  Sender: FDA-Public Use
  Company Number: PHHO2014CA003697

PATIENT
  Age: 57 Year
  Sex: Female
  Weight: 96.5 kg

DRUGS (5)
  1. AMN107 [Suspect]
     Indication: CHRONIC MYELOID LEUKAEMIA
     Dosage: 300 MG, BID
     Route: 048
     Dates: start: 20120330, end: 20140223
  2. NILOTINIB [Suspect]
     Indication: CHRONIC MYELOID LEUKAEMIA
     Dosage: 300 MG, BID
     Dates: start: 20140306
  3. ELTROXIN [Concomitant]
     Indication: HYPOTHYROIDISM
     Dosage: 200 UG, QD
     Route: 048
  4. NORVASC [Concomitant]
     Dosage: 5 MG, QD
     Route: 048
     Dates: start: 20120115
  5. COZAAR [Concomitant]
     Dosage: 5 MG, QD
     Route: 048

REACTIONS (1)
  - Pericardial effusion [Recovered/Resolved]
